FAERS Safety Report 7039860-7 (Version None)
Quarter: 2010Q4

REPORT INFORMATION
  Report Type: 
  Country: None (occurrence: None)
  Receive Date: 20101012
  Receipt Date: 20101005
  Transmission Date: 20110411
  Serious: Yes (Life-Threatening, Hospitalization)
  Sender: FDA-Public Use
  Company Number: DE-AMGEN-QUU432437

PATIENT
  Sex: Male
  Weight: 106 kg

DRUGS (13)
  1. ENBREL [Suspect]
     Indication: ANKYLOSING SPONDYLITIS
     Dosage: 50 MG, FREQUENCY UNKNOWN
     Route: 058
     Dates: start: 20100625, end: 20100722
  2. DICLOFENAC SODIUM [Concomitant]
     Indication: RHEUMATOID ARTHRITIS
     Dosage: 75 MG, IF REQUIRED
     Route: 048
     Dates: start: 20070101
  3. PANTOPRAZOLE [Concomitant]
     Route: 048
     Dates: start: 20090101
  4. METFORMIN [Concomitant]
     Route: 048
  5. BYETTA [Concomitant]
     Route: 058
  6. FOLIC ACID [Concomitant]
  7. HYDROCHLOROTHIAZIDE [Concomitant]
     Route: 048
  8. MULTIVITAMINS, COMBINATIONS [Concomitant]
  9. PROSTAGUTT [Concomitant]
     Route: 048
  10. BETULA LEAF EXTRACT/ORTHOSIPHON LEAF EXTRACT/SOLIDAGINIS EXTRACT [Concomitant]
     Route: 048
  11. METEX [Concomitant]
  12. ARAVA [Concomitant]
     Indication: RHEUMATOID ARTHRITIS
     Dosage: 20 MG, FREQUENCY UNKNOWN
     Route: 048
     Dates: start: 20100331, end: 20100725
  13. LANTUS [Concomitant]
     Route: 058

REACTIONS (6)
  - BACTERIAL INFECTION [None]
  - CEREBRAL HAEMORRHAGE [None]
  - CEREBRAL INFARCTION [None]
  - HYPOKALAEMIA [None]
  - INFREQUENT BOWEL MOVEMENTS [None]
  - THROMBOPHLEBITIS SUPERFICIAL [None]
